FAERS Safety Report 25012256 (Version 2)
Quarter: 2025Q3

REPORT INFORMATION
  Report Type: Report from Study
  Country: EU (occurrence: EU)
  Receive Date: 20250226
  Receipt Date: 20250722
  Transmission Date: 20251020
  Serious: Yes (Death, Other)
  Sender: TAKEDA
  Company Number: EU-JNJFOC-20240644581

PATIENT

DRUGS (4)
  1. BORTEZOMIB [Suspect]
     Active Substance: BORTEZOMIB
     Indication: Plasma cell myeloma
  2. DEXAMETHASONE [Suspect]
     Active Substance: DEXAMETHASONE
     Indication: Plasma cell myeloma
  3. ISATUXIMAB [Suspect]
     Active Substance: ISATUXIMAB
     Indication: Plasma cell myeloma
  4. LENALIDOMIDE [Suspect]
     Active Substance: LENALIDOMIDE
     Indication: Plasma cell myeloma

REACTIONS (32)
  - Staphylococcal sepsis [Fatal]
  - Pneumonia [Fatal]
  - Transaminases increased [Unknown]
  - Rash maculo-papular [Unknown]
  - Embolism venous [Unknown]
  - Arrhythmia [Unknown]
  - Gastrointestinal haemorrhage [Unknown]
  - Acute kidney injury [Unknown]
  - Neutropenia [Unknown]
  - Thrombocytopenia [Unknown]
  - Hyperglycaemia [Unknown]
  - Infection [Unknown]
  - Peripheral sensory neuropathy [Unknown]
  - Diarrhoea [Unknown]
  - Toxicity to various agents [Unknown]
  - Arthritis [Unknown]
  - Bone pain [Unknown]
  - Syncope [Unknown]
  - Respiratory tract infection [Unknown]
  - Osteonecrosis of jaw [Unknown]
  - Electrolyte imbalance [Unknown]
  - Weight decreased [Unknown]
  - Plasma cell myeloma [Unknown]
  - Therapy partial responder [Unknown]
  - Oedema [Unknown]
  - Treatment noncompliance [Unknown]
  - Constipation [Unknown]
  - Nausea [Unknown]
  - Infusion related reaction [Unknown]
  - Anaemia [Unknown]
  - Adverse event [Unknown]
  - Fatigue [Unknown]
